FAERS Safety Report 10268772 (Version 3)
Quarter: 2016Q3

REPORT INFORMATION
  Report Type: Spontaneous
  Country: JP (occurrence: JP)
  Receive Date: 20140630
  Receipt Date: 20160708
  Transmission Date: 20161109
  Serious: Yes (Hospitalization)
  Sender: FDA-Public Use
  Company Number: PHHY2014JP079967

PATIENT
  Age: 75 Year
  Sex: Male
  Weight: 56 kg

DRUGS (25)
  1. EQUA TAB [Suspect]
     Active Substance: VILDAGLIPTIN
     Indication: TYPE 2 DIABETES MELLITUS
     Dosage: 50 MG, BID
     Route: 048
     Dates: start: 20130624, end: 20140519
  2. ARTIST [Concomitant]
     Active Substance: CARVEDILOL
     Indication: CARDIAC FAILURE CHRONIC
     Dosage: 10 MG, BID
     Route: 048
  3. ARTIST [Concomitant]
     Active Substance: CARVEDILOL
     Indication: ATRIAL FIBRILLATION
  4. ARTIST [Concomitant]
     Active Substance: CARVEDILOL
     Indication: PERIPHERAL ARTERIAL OCCLUSIVE DISEASE
  5. BLOPRESS [Concomitant]
     Active Substance: CANDESARTAN CILEXETIL
     Indication: ATRIAL FIBRILLATION
  6. PLETAAL [Concomitant]
     Active Substance: CILOSTAZOL
     Indication: CARDIAC FAILURE CHRONIC
     Dosage: 100 MG, BID
     Route: 048
  7. DIGOSIN [Concomitant]
     Active Substance: DIGOXIN
     Indication: CARDIAC FAILURE CHRONIC
     Dosage: 0.125 MG, QD
     Route: 048
  8. GLUFAST [Concomitant]
     Active Substance: MITIGLINIDE
     Indication: TYPE 2 DIABETES MELLITUS
     Dosage: 10 MG, TID
     Route: 048
     Dates: start: 20140428
  9. NORVASC [Concomitant]
     Active Substance: AMLODIPINE BESYLATE
     Indication: ATRIAL FIBRILLATION
  10. WARFARIN [Concomitant]
     Active Substance: WARFARIN
     Indication: PERIPHERAL ARTERIAL OCCLUSIVE DISEASE
  11. PREDNISOLONE. [Concomitant]
     Active Substance: PREDNISOLONE
     Indication: PEMPHIGOID
     Dosage: 55 MG, UNK
     Route: 048
  12. PLETAAL [Concomitant]
     Active Substance: CILOSTAZOL
     Indication: ATRIAL FIBRILLATION
  13. PREDNISOLONE. [Concomitant]
     Active Substance: PREDNISOLONE
     Indication: CHRONIC KIDNEY DISEASE
     Dosage: 5 MG, BID
     Route: 048
  14. PLETAAL [Concomitant]
     Active Substance: CILOSTAZOL
     Indication: PERIPHERAL ARTERIAL OCCLUSIVE DISEASE
  15. BLOPRESS [Concomitant]
     Active Substance: CANDESARTAN CILEXETIL
     Indication: CARDIAC FAILURE CHRONIC
     Dosage: 4 MG, QD
     Route: 048
  16. NORVASC [Concomitant]
     Active Substance: AMLODIPINE BESYLATE
     Indication: PERIPHERAL ARTERIAL OCCLUSIVE DISEASE
  17. WARFARIN [Concomitant]
     Active Substance: WARFARIN
     Indication: CARDIAC FAILURE CHRONIC
     Dosage: 1 MG, QD
     Route: 048
  18. VOLTAREN [Suspect]
     Active Substance: DICLOFENAC SODIUM
     Indication: OSTEOARTHRITIS
     Dosage: 37.5 MG, QD
     Route: 048
  19. PREDNISOLONE. [Concomitant]
     Active Substance: PREDNISOLONE
     Dosage: 30 MG, UNK
  20. BLOPRESS [Concomitant]
     Active Substance: CANDESARTAN CILEXETIL
     Indication: PERIPHERAL ARTERIAL OCCLUSIVE DISEASE
  21. PREDNISOLONE. [Concomitant]
     Active Substance: PREDNISOLONE
     Dosage: 5 MG, BID
     Route: 048
     Dates: start: 20160602
  22. DIGOSIN [Concomitant]
     Active Substance: DIGOXIN
     Indication: ATRIAL FIBRILLATION
  23. DIGOSIN [Concomitant]
     Active Substance: DIGOXIN
     Indication: PERIPHERAL ARTERIAL OCCLUSIVE DISEASE
  24. NORVASC [Concomitant]
     Active Substance: AMLODIPINE BESYLATE
     Indication: CARDIAC FAILURE CHRONIC
     Dosage: 5 MG, QD
     Route: 048
  25. WARFARIN [Concomitant]
     Active Substance: WARFARIN
     Indication: ATRIAL FIBRILLATION

REACTIONS (7)
  - Skin ulcer [Unknown]
  - Pemphigoid [Recovering/Resolving]
  - Skin erosion [Unknown]
  - Blister [Unknown]
  - Blood blister [Unknown]
  - Pruritus [Unknown]
  - Perivascular dermatitis [Unknown]

NARRATIVE: CASE EVENT DATE: 20140127
